FAERS Safety Report 11668520 (Version 8)
Quarter: 2022Q2

REPORT INFORMATION
  Report Type: Spontaneous
  Country: US (occurrence: US)
  Receive Date: 20151027
  Receipt Date: 20220520
  Transmission Date: 20220720
  Serious: Yes (Hospitalization, Disabling, Other)
  Sender: FDA-Public Use
  Company Number: US-PFIZER INC-2015358368

PATIENT
  Age: 40 Year
  Sex: Male

DRUGS (4)
  1. XANAX [Interacting]
     Active Substance: ALPRAZOLAM
     Indication: Depression
     Dosage: UNK
     Dates: end: 20070813
  2. CHANTIX [Interacting]
     Active Substance: VARENICLINE TARTRATE
     Indication: Smoking cessation therapy
     Dosage: UNK
     Dates: end: 20070813
  3. METHADONE [Interacting]
     Active Substance: METHADONE HYDROCHLORIDE
     Indication: Pain
     Dosage: UNK
     Dates: end: 20070813
  4. LORTAB [Interacting]
     Active Substance: ACETAMINOPHEN\HYDROCODONE BITARTRATE
     Indication: Pain
     Dosage: UNK
     Dates: end: 20070813

REACTIONS (21)
  - Drug interaction [Recovered/Resolved]
  - Suicide attempt [Recovered/Resolved]
  - Homicide [Recovered/Resolved]
  - Overdose [Unknown]
  - Loss of consciousness [Unknown]
  - Seizure [Unknown]
  - Drug dependence [Unknown]
  - Withdrawal syndrome [Unknown]
  - Weight increased [Unknown]
  - Fatigue [Unknown]
  - Asthenia [Unknown]
  - Personality change [Unknown]
  - Muscle disorder [Unknown]
  - Insomnia [Unknown]
  - Depression [Unknown]
  - Constipation [Unknown]
  - Diarrhoea [Not Recovered/Not Resolved]
  - Somnambulism [Unknown]
  - Muscle spasms [Unknown]
  - Pain [Unknown]
  - Mental disorder [Unknown]

NARRATIVE: CASE EVENT DATE: 20050115
